FAERS Safety Report 8231628-9 (Version None)
Quarter: 2012Q1

REPORT INFORMATION
  Report Type: 
  Country: None (occurrence: None)
  Receive Date: 20120323
  Receipt Date: 20120313
  Transmission Date: 20120608
  Serious: Yes (Other)
  Sender: FDA-Public Use
  Company Number: US-ELI_LILLY_AND_COMPANY-US201203003801

PATIENT
  Age: 74 Year
  Sex: Female

DRUGS (6)
  1. ATENOLOL [Concomitant]
  2. FORTEO [Suspect]
     Dosage: 20 UG, QD
     Route: 065
     Dates: start: 20120301
  3. CRESTOR [Concomitant]
  4. FORTEO [Suspect]
     Indication: OSTEOPOROSIS
     Dosage: 20 UG, QD
     Route: 065
     Dates: start: 20110401, end: 20111201
  5. NASONEX [Concomitant]
  6. LISINOPRIL [Concomitant]

REACTIONS (6)
  - FALL [None]
  - COELIAC DISEASE [None]
  - LIVER FUNCTION TEST ABNORMAL [None]
  - HIP FRACTURE [None]
  - DEHYDRATION [None]
  - DIARRHOEA [None]
